FAERS Safety Report 13844256 (Version 1)
Quarter: 2017Q3

REPORT INFORMATION
  Report Type: Spontaneous
  Country: FR (occurrence: FR)
  Receive Date: 20170808
  Receipt Date: 20170808
  Transmission Date: 20171127
  Serious: Yes (Death, Hospitalization, Other)
  Sender: FDA-Public Use
  Company Number: FR-PFIZER INC-2017337464

PATIENT
  Age: 77 Year
  Sex: Male

DRUGS (1)
  1. FRAGMINE [Suspect]
     Active Substance: DALTEPARIN SODIUM
     Indication: PULMONARY EMBOLISM
     Dosage: 18000 IU, 1X/DAY
     Route: 058
     Dates: start: 201403

REACTIONS (6)
  - Rectal haemorrhage [Unknown]
  - Coma [Unknown]
  - Respiratory failure [Fatal]
  - Neoplasm progression [Fatal]
  - Lactic acidosis [Fatal]
  - Anaemia [Unknown]

NARRATIVE: CASE EVENT DATE: 20140408
